FAERS Safety Report 6464089-0 (Version None)
Quarter: 2009Q4

REPORT INFORMATION
  Report Type: 
  Country: None (occurrence: None)
  Receive Date: 20091130
  Receipt Date: 20091130
  Transmission Date: 20100525
  Serious: No
  Sender: FDA-Public Use
  Company Number: None

PATIENT
  Age: 40 Year
  Sex: Female
  Weight: 52.1637 kg

DRUGS (1)
  1. ZYRTEC [Suspect]
     Indication: MULTIPLE ALLERGIES
     Dosage: 10 MG ONCE A DAY
     Dates: start: 20080501, end: 20091121

REACTIONS (4)
  - BLOOD URINE PRESENT [None]
  - PAIN [None]
  - PRURITUS [None]
  - RENAL DISORDER [None]
